FAERS Safety Report 21002196 (Version 1)
Quarter: 2022Q2

REPORT INFORMATION
  Report Type: Spontaneous
  Country: FR (occurrence: FR)
  Receive Date: 20220624
  Receipt Date: 20220624
  Transmission Date: 20220721
  Serious: Yes (Hospitalization)
  Sender: FDA-Public Use
  Company Number: None

PATIENT
  Age: 74 Year
  Sex: Male

DRUGS (3)
  1. OXALIPLATIN [Suspect]
     Active Substance: OXALIPLATIN
     Indication: Adenocarcinoma gastric
     Dosage: ACCORDING TO CYCLE , UNIT DOSE : 110 MG , DURATION : 14 DAYS
     Route: 042
     Dates: start: 20220426, end: 20220510
  2. FLUOROURACIL [Suspect]
     Active Substance: FLUOROURACIL
     Indication: Adenocarcinoma gastric
     Dosage: ACCORDING TO CYCLE , UNIT DOSE : 4100 MG , DURATION : 15 DAYS
     Dates: start: 20220426, end: 20220511
  3. METHYLPREDNISOLONE [Suspect]
     Active Substance: METHYLPREDNISOLONE
     Indication: Chemotherapy side effect prophylaxis
     Dosage: UNIT DOSE : 80 MG , DURATION : 14 DAYS
     Route: 041
     Dates: start: 20220426, end: 20220510

REACTIONS (1)
  - Pancreatitis [Recovering/Resolving]

NARRATIVE: CASE EVENT DATE: 20220511
